FAERS Safety Report 10237104 (Version 1)
Quarter: 2014Q2

REPORT INFORMATION
  Report Type: Report from Study
  Country: SG (occurrence: SG)
  Receive Date: 20140613
  Receipt Date: 20140613
  Transmission Date: 20141212
  Serious: Yes (Other)
  Sender: FDA-Public Use
  Company Number: SG-009507513-1406SGP004683

PATIENT
  Age: 65 Year
  Sex: Male
  Weight: 58.19 kg

DRUGS (13)
  1. DEXAMETHASONE [Suspect]
     Indication: LYMPHOMA
     Dosage: 40 MG, 1X/DAY FOR 4 DAYS
     Route: 048
     Dates: start: 20111027, end: 20111030
  2. INOTUZUMAB OZOGAMICIN [Suspect]
     Indication: LYMPHOMA
     Dosage: 1.3 MG, 1X/DAY
     Route: 042
     Dates: start: 20111028, end: 20111028
  3. RITUXIMAB [Suspect]
     Indication: LYMPHOMA
     Dosage: 600 MG, 1X/DAY
     Route: 042
     Dates: start: 20111027, end: 20111027
  4. GEMCITABINE [Suspect]
     Indication: LYMPHOMA
     Dosage: 820 MG, 1X/DAY
     Route: 042
     Dates: start: 20111027, end: 20111027
  5. CISPLATIN [Suspect]
     Indication: LYMPHOMA
     Dosage: 82 MG, 1X/DAY
     Route: 042
     Dates: start: 20111027, end: 20111027
  6. ACYCLOVIR [Concomitant]
     Indication: PROPHYLAXIS
     Dosage: UNK
     Dates: start: 20111029
  7. BIOTENE [Concomitant]
     Indication: INFECTION PROPHYLAXIS
     Dosage: UNK
     Route: 048
     Dates: start: 20111028
  8. CIPROFLOXACIN [Concomitant]
     Indication: INFECTION PROPHYLAXIS
     Dosage: UNK
     Dates: start: 20111028
  9. RANITIDINE [Concomitant]
     Indication: GASTRITIS PROPHYLAXIS
     Dosage: UNK
     Dates: start: 20111028
  10. SERETIDE [Concomitant]
     Indication: ASTHMA
     Dosage: ^25/50 EXHALER^
     Route: 055
     Dates: start: 20111028
  11. METOCLOPRAMIDE [Concomitant]
     Indication: HICCUPS
     Dosage: UNK
     Dates: start: 20111102, end: 20111109
  12. TRAMADOL HYDROCHLORIDE [Concomitant]
     Indication: ABDOMINAL PAIN
     Dosage: UNK
     Dates: start: 20111020, end: 20111027
  13. PREDNISOLONE [Concomitant]
     Indication: ALLERGY PROPHYLAXIS
     Dosage: UNK
     Route: 048
     Dates: start: 20111024, end: 20111025

REACTIONS (8)
  - Thrombocytopenia [Recovering/Resolving]
  - Haematocrit decreased [Unknown]
  - Haemoglobin decreased [Unknown]
  - Lymphocyte count decreased [Unknown]
  - Neutrophil count increased [Unknown]
  - Red blood cell count decreased [Unknown]
  - White blood cell count decreased [Unknown]
  - Platelet transfusion [Recovering/Resolving]
